FAERS Safety Report 16382763 (Version 2)
Quarter: 2019Q2

REPORT INFORMATION
  Report Type: Report from Study
  Country: IN (occurrence: IN)
  Receive Date: 20190603
  Receipt Date: 20190618
  Transmission Date: 20190711
  Serious: Yes (Death)
  Sender: FDA-Public Use
  Company Number: IN-PFIZER INC-2019235501

PATIENT

DRUGS (1)
  1. DRUG, UNSPECIFIED [Suspect]
     Active Substance: UNSPECIFIED INGREDIENT
     Indication: NON-SMALL CELL LUNG CANCER
     Dosage: NO DOSE GIVEN

REACTIONS (1)
  - Death [Fatal]
